FAERS Safety Report 25967966 (Version 1)
Quarter: 2025Q4

REPORT INFORMATION
  Report Type: Report from Study
  Country: EU (occurrence: EU)
  Receive Date: 20251028
  Receipt Date: 20251028
  Transmission Date: 20260118
  Serious: Yes (Hospitalization)
  Sender: DAIICHI
  Company Number: EU-ASTRAZENECA-202510GLO019602DE

PATIENT
  Sex: Female

DRUGS (4)
  1. ENHERTU [Suspect]
     Active Substance: FAM-TRASTUZUMAB DERUXTECAN-NXKI
     Indication: HER2 positive breast cancer
     Dosage: 5.4 MILLIGRAM/KILOGRAM
     Route: 042
     Dates: start: 20250508
  2. ENHERTU [Suspect]
     Active Substance: FAM-TRASTUZUMAB DERUXTECAN-NXKI
     Indication: Breast cancer metastatic
  3. ONDANSETRON HYDROCHLORIDE [Concomitant]
     Active Substance: ONDANSETRON HYDROCHLORIDE
     Indication: Product used for unknown indication
     Dosage: UNK
     Route: 048
     Dates: start: 20250509
  4. SANCUSO [Concomitant]
     Active Substance: GRANISETRON
     Indication: Product used for unknown indication
     Dosage: 3.1 MILLIGRAM, Q3W
     Route: 062
     Dates: start: 20250818

REACTIONS (1)
  - Thrombosis [Not Recovered/Not Resolved]

NARRATIVE: CASE EVENT DATE: 20250912
